FAERS Safety Report 21989940 (Version 6)
Quarter: 2023Q2

REPORT INFORMATION
  Report Type: Spontaneous
  Country: AU (occurrence: AU)
  Receive Date: 20230214
  Receipt Date: 20230426
  Transmission Date: 20230721
  Serious: Yes (Other)
  Sender: FDA-Public Use
  Company Number: AU-PFIZER INC-202300060852

PATIENT
  Age: 74 Year
  Sex: Female
  Weight: 64.6 kg

DRUGS (7)
  1. PAXLOVID [Suspect]
     Active Substance: NIRMATRELVIR\RITONAVIR
     Indication: COVID-19 treatment
     Dosage: 3 TABLETS IN THE MORNING AND 3 TABLETS IN THE EVENING
     Route: 048
     Dates: start: 20230207, end: 20230212
  2. PANTOPRAZOLE SODIUM [Concomitant]
     Active Substance: PANTOPRAZOLE SODIUM
     Indication: Regurgitation
  3. THYROXINE [Concomitant]
     Active Substance: LEVOTHYROXINE
     Dosage: 100MCG
  4. DYMISTA [Concomitant]
     Active Substance: AZELASTINE HYDROCHLORIDE\FLUTICASONE PROPIONATE
     Indication: Seasonal allergy
  5. LACTEEZE [Concomitant]
     Indication: Lactose intolerance
  6. FOMAC [Concomitant]
     Indication: Gastrooesophageal reflux disease
     Dosage: 20 MG
     Route: 048
  7. LEVOTHYROXINE SODIUM [Concomitant]
     Active Substance: LEVOTHYROXINE SODIUM
     Indication: Hypothyroidism
     Dosage: 150 MG
     Route: 048

REACTIONS (24)
  - Autoimmune disorder [Unknown]
  - Dysgeusia [Recovering/Resolving]
  - Chest pain [Unknown]
  - Sinus disorder [Unknown]
  - Gastric disorder [Unknown]
  - Headache [Unknown]
  - Nausea [Not Recovered/Not Resolved]
  - Constipation [Recovering/Resolving]
  - Insomnia [Recovering/Resolving]
  - Dizziness [Recovered/Resolved]
  - Mental disorder [Unknown]
  - Cough [Recovering/Resolving]
  - Oropharyngeal pain [Unknown]
  - Dyspnoea [Unknown]
  - Decreased appetite [Not Recovered/Not Resolved]
  - Gastrooesophageal reflux disease [Unknown]
  - Abdominal pain upper [Unknown]
  - Condition aggravated [Unknown]
  - Dry mouth [Unknown]
  - Malaise [Unknown]
  - Glossodynia [Unknown]
  - Swollen tongue [Unknown]
  - Fatigue [Unknown]
  - Nightmare [Unknown]

NARRATIVE: CASE EVENT DATE: 20230208
